FAERS Safety Report 18355099 (Version 8)
Quarter: 2022Q1

REPORT INFORMATION
  Report Type: Spontaneous
  Country: US (occurrence: US)
  Receive Date: 20201007
  Receipt Date: 20220125
  Transmission Date: 20220424
  Serious: No
  Sender: FDA-Public Use
  Company Number: US-PFIZER INC-2020385410

PATIENT
  Age: 69 Year
  Sex: Female

DRUGS (1)
  1. XELJANZ XR [Suspect]
     Active Substance: TOFACITINIB CITRATE
     Indication: Rheumatoid arthritis
     Dosage: 11 MG, 1X/DAY [ONCE A DAY]
     Route: 048
     Dates: start: 202008

REACTIONS (14)
  - Wrong technique in product usage process [Unknown]
  - Product dose omission issue [Unknown]
  - Headache [Unknown]
  - Blood pressure increased [Unknown]
  - COVID-19 [Unknown]
  - Diarrhoea [Unknown]
  - Respiratory syncytial virus infection [Unknown]
  - Malaise [Unknown]
  - Bronchitis [Unknown]
  - Herpes zoster [Unknown]
  - Illness [Unknown]
  - Memory impairment [Unknown]
  - Discouragement [Unknown]
  - Depressed mood [Unknown]

NARRATIVE: CASE EVENT DATE: 20200101
